FAERS Safety Report 24775005 (Version 2)
Quarter: 2025Q1

REPORT INFORMATION
  Report Type: Spontaneous
  Country: JP (occurrence: JP)
  Receive Date: 20241226
  Receipt Date: 20250204
  Transmission Date: 20250409
  Serious: Yes (Other)
  Sender: Unknown Manufacturer
  Company Number: JP-MTPC-MTPC2024-0025480

PATIENT
  Age: 72 Year
  Sex: Male

DRUGS (2)
  1. EDARAVONE [Suspect]
     Active Substance: EDARAVONE
     Route: 048
     Dates: start: 20230606
  2. EDARAVONE [Suspect]
     Active Substance: EDARAVONE
     Route: 048
     Dates: start: 20230606

REACTIONS (1)
  - Pneumonia aspiration [Unknown]
